FAERS Safety Report 5117668-7 (Version None)
Quarter: 2006Q3

REPORT INFORMATION
  Report Type: 
  Country: None (occurrence: None)
  Receive Date: 20060926
  Receipt Date: 20060911
  Transmission Date: 20061208
  Serious: Yes (Hospitalization)
  Sender: FDA-Public Use
  Company Number: WAES0609USA02260

PATIENT
  Age: 50 Year
  Sex: Female

DRUGS (11)
  1. SINGULAIR [Suspect]
     Indication: ASTHMA
     Dosage: 7 MG/1X
     Route: 042
     Dates: start: 20060906, end: 20060906
  2. ADONA [Concomitant]
  3. ALLELOCK [Concomitant]
  4. CINAL [Concomitant]
  5. GASTER D [Concomitant]
  6. PREDNISOLON [Concomitant]
  7. PULMICORT [Concomitant]
  8. TRANSAMIN [Concomitant]
  9. ALBUTEROL SULFATE [Concomitant]
  10. METHYLPREDNISOLONE [Concomitant]
  11. THEOPHYLLINE [Concomitant]

REACTIONS (8)
  - ASTHMA [None]
  - CHOLELITHIASIS [None]
  - CONDITION AGGRAVATED [None]
  - GASTRITIS [None]
  - GASTRITIS ATROPHIC [None]
  - INFECTION [None]
  - REFLUX OESOPHAGITIS [None]
  - URINE AMYLASE INCREASED [None]
